FAERS Safety Report 7974463-9 (Version None)
Quarter: 2011Q4

REPORT INFORMATION
  Report Type: 
  Country: None (occurrence: None)
  Receive Date: 20111213
  Receipt Date: 20111207
  Transmission Date: 20120403
  Serious: Yes (Hospitalization)
  Sender: FDA-Public Use
  Company Number: GB-AMGEN-GBRCT2011054774

PATIENT
  Age: 51 Year
  Sex: Female

DRUGS (4)
  1. EPIRUBICIN [Concomitant]
     Dosage: UNK UNK, Q3WK
     Route: 042
     Dates: start: 20110819
  2. DENOSUMAB [Suspect]
     Indication: BREAST CANCER
     Dosage: UNK UNK, Q3WK
     Route: 058
     Dates: start: 20110909
  3. CYCLOPHOSPHAMIDE [Concomitant]
     Dosage: UNK UNK, Q3WK
     Route: 042
     Dates: start: 20110819
  4. FLUOROURACIL [Concomitant]
     Dosage: UNK UNK, Q3WK
     Route: 042
     Dates: start: 20110819

REACTIONS (2)
  - PYREXIA [None]
  - INFECTION [None]
